FAERS Safety Report 5382471-X (Version None)
Quarter: 2007Q3

REPORT INFORMATION
  Report Type: 
  Country: None (occurrence: None)
  Receive Date: 20070703
  Receipt Date: 20070424
  Transmission Date: 20080115
  Serious: Yes (Other)
  Sender: FDA-Public Use
  Company Number: US-JNJFOC-20070405282

PATIENT
  Age: 63 Year
  Sex: Female
  Weight: 136.0791 kg

DRUGS (1)
  1. MOTRIN IB [Suspect]
     Indication: PAIN

REACTIONS (3)
  - PERIORBITAL OEDEMA [None]
  - PHARYNGEAL OEDEMA [None]
  - SWELLING FACE [None]
